FAERS Safety Report 11296570 (Version 1)
Quarter: 2015Q3

REPORT INFORMATION
  Report Type: Spontaneous
  Country: US (occurrence: US)
  Receive Date: 20150722
  Receipt Date: 20150722
  Transmission Date: 20151125
  Serious: Yes (Hospitalization)
  Sender: FDA-Public Use
  Company Number: US-ELI_LILLY_AND_COMPANY-US201004007646

PATIENT
  Sex: Female

DRUGS (1)
  1. EFFIENT [Suspect]
     Active Substance: PRASUGREL HYDROCHLORIDE
     Indication: PERCUTANEOUS CORONARY INTERVENTION
     Dosage: 10 MG, DAILY (1/D)
     Dates: start: 201002, end: 20100418

REACTIONS (8)
  - Faeces discoloured [Recovering/Resolving]
  - Rash [Recovering/Resolving]
  - Dyspnoea [Recovering/Resolving]
  - Musculoskeletal stiffness [Recovering/Resolving]
  - Gingival pain [Recovering/Resolving]
  - Dyspepsia [Not Recovered/Not Resolved]
  - Abdominal distension [Not Recovered/Not Resolved]
  - Peripheral swelling [Recovering/Resolving]

NARRATIVE: CASE EVENT DATE: 2010
